FAERS Safety Report 15007798 (Version 1)
Quarter: 2018Q2

REPORT INFORMATION
  Report Type: Spontaneous
  Country: US (occurrence: US)
  Receive Date: 20180613
  Receipt Date: 20180613
  Transmission Date: 20180711
  Serious: No
  Sender: FDA-Public Use
  Company Number: US-VIFOR (INTERNATIONAL) INC.-VIT-2018-05502

PATIENT
  Sex: Female

DRUGS (10)
  1. COLECALCIFEROL [Concomitant]
     Active Substance: CHOLECALCIFEROL
  2. VELTASSA [Suspect]
     Active Substance: PATIROMER
     Indication: HYPERKALAEMIA
     Route: 048
     Dates: start: 20180330
  3. LABETALOL HYDROCHLORIDE. [Concomitant]
     Active Substance: LABETALOL HYDROCHLORIDE
  4. FUROSEMIDE. [Concomitant]
     Active Substance: FUROSEMIDE
  5. CHLORTALIDONE [Concomitant]
     Active Substance: CHLORTHALIDONE
  6. SODIUM BICARBONATE. [Concomitant]
     Active Substance: SODIUM BICARBONATE
  7. IRON [Concomitant]
     Active Substance: IRON
  8. CITALOPRAM HYDROBROMIDE. [Concomitant]
     Active Substance: CITALOPRAM HYDROBROMIDE
  9. NOVOLOG [Concomitant]
     Active Substance: INSULIN ASPART
  10. SIMVASTATIN. [Concomitant]
     Active Substance: SIMVASTATIN

REACTIONS (3)
  - Diarrhoea [Unknown]
  - Abdominal discomfort [Unknown]
  - Drug dose omission [Unknown]

NARRATIVE: CASE EVENT DATE: 2018
